FAERS Safety Report 23427011 (Version 1)
Quarter: 2024Q1

REPORT INFORMATION
  Report Type: Spontaneous
  Country: US (occurrence: None)
  Receive Date: 20240119
  Receipt Date: 20240119
  Transmission Date: 20240410
  Serious: Yes (Other)
  Sender: FDA-Public Use
  Company Number: None

PATIENT
  Age: 61 Year
  Sex: Female

DRUGS (1)
  1. LENALIDOMIDE [Suspect]
     Active Substance: LENALIDOMIDE
     Indication: Plasma cell myeloma
     Dosage: 2.5MG QD ORAL
     Route: 048
     Dates: start: 20231016

REACTIONS (3)
  - Rash erythematous [None]
  - Rash pruritic [None]
  - Therapy interrupted [None]

NARRATIVE: CASE EVENT DATE: 20240102
